FAERS Safety Report 17854149 (Version 1)
Quarter: 2020Q2

REPORT INFORMATION
  Report Type: Spontaneous
  Country: US (occurrence: US)
  Receive Date: 20200603
  Receipt Date: 20200603
  Transmission Date: 20200714
  Serious: Yes (Other)
  Sender: FDA-Public Use
  Company Number: US-009507513-2006USA000099

PATIENT
  Sex: Male

DRUGS (1)
  1. KEYTRUDA [Suspect]
     Active Substance: PEMBROLIZUMAB
     Indication: HODGKIN^S DISEASE
     Dosage: 200 MILLIGRAM, EVERY 21 DAYS
     Route: 042
     Dates: start: 201906, end: 20200416

REACTIONS (4)
  - Dyspnoea [Unknown]
  - Dermatitis bullous [Not Recovered/Not Resolved]
  - Rash maculo-papular [Not Recovered/Not Resolved]
  - Fatigue [Unknown]

NARRATIVE: CASE EVENT DATE: 201908
